FAERS Safety Report 5715757-7 (Version None)
Quarter: 2008Q2

REPORT INFORMATION
  Report Type: 
  Country: None (occurrence: None)
  Receive Date: 20080422
  Receipt Date: 20080409
  Transmission Date: 20081010
  Serious: Yes (Hospitalization)
  Sender: FDA-Public Use
  Company Number: 028-C5013-07100376

PATIENT
  Age: 69 Year
  Sex: Male
  Weight: 90.7194 kg

DRUGS (13)
  1. CC-5013 (LENALIDOMIDE) (25 MILLIGRAM, CAPSULES) [Suspect]
     Indication: MULTIPLE MYELOMA
     Dosage: 25 MG, X21 DAYS OF 28 DAY CYCLE, ORAL; 25 MG, OD 21 DAYS OF 28 DAY CYCLE, ORAL
     Route: 048
     Dates: start: 20061229, end: 20071002
  2. CC-5013 (LENALIDOMIDE) (25 MILLIGRAM, CAPSULES) [Suspect]
     Indication: MULTIPLE MYELOMA
     Dosage: 25 MG, X21 DAYS OF 28 DAY CYCLE, ORAL; 25 MG, OD 21 DAYS OF 28 DAY CYCLE, ORAL
     Route: 048
     Dates: start: 20071025
  3. DEXAMETHASONE TAB [Suspect]
     Indication: MULTIPLE MYELOMA
     Dosage: 40 MG, DAILY FOR 4 DAYS ON DAY BEFORE ADMISSION,; 40 MG,
     Dates: end: 20071001
  4. DEXAMETHASONE TAB [Suspect]
     Indication: MULTIPLE MYELOMA
     Dosage: 40 MG, DAILY FOR 4 DAYS ON DAY BEFORE ADMISSION,; 40 MG,
     Dates: start: 20071025
  5. PREVACID [Concomitant]
  6. LEVOTHYROXINE SODIUM [Concomitant]
  7. FUROSEMIDE [Concomitant]
  8. METOPROLOL TARTRATE [Concomitant]
  9. DIGOXIN [Concomitant]
  10. SLOW-K [Concomitant]
  11. ACTOS [Concomitant]
  12. GLYBURIDE [Concomitant]
  13. GLYBURIDE [Concomitant]

REACTIONS (18)
  - ATELECTASIS [None]
  - ATRIAL FIBRILLATION [None]
  - BENIGN PROSTATIC HYPERPLASIA [None]
  - CARDIAC FAILURE CONGESTIVE [None]
  - CARDIOMYOPATHY [None]
  - FEBRILE NEUTROPENIA [None]
  - HYPOTHYROIDISM [None]
  - OSTEOPOROTIC FRACTURE [None]
  - PANCYTOPENIA [None]
  - PLEURAL EFFUSION [None]
  - PNEUMONIA PNEUMOCOCCAL [None]
  - PULMONARY VASCULAR DISORDER [None]
  - RENAL IMPAIRMENT [None]
  - SEPSIS [None]
  - SPINAL COMPRESSION FRACTURE [None]
  - THORACIC VERTEBRAL FRACTURE [None]
  - TYPE 2 DIABETES MELLITUS [None]
  - VENTRICULAR TACHYCARDIA [None]
